FAERS Safety Report 22159837 (Version 1)
Quarter: 2023Q1

REPORT INFORMATION
  Report Type: Spontaneous
  Country: ES (occurrence: ES)
  Receive Date: 20230331
  Receipt Date: 20230331
  Transmission Date: 20230417
  Serious: Yes (Hospitalization)
  Sender: FDA-Public Use
  Company Number: None

PATIENT
  Age: 91 Year
  Sex: Male

DRUGS (9)
  1. IBUPROFEN [Suspect]
     Active Substance: IBUPROFEN
     Indication: Arthritis
     Dosage: (1769A)
     Route: 065
     Dates: start: 20211217, end: 20230214
  2. DEXKETOPROFEN TROMETAMOL [Suspect]
     Active Substance: DEXKETOPROFEN TROMETAMOL
     Indication: Arthritis
     Dosage: 6 AMPOULES OF 2 ML, FORM STRENGTH : 50 MG/2 ML
     Route: 065
     Dates: start: 20230216, end: 20230216
  3. SINTROM [Concomitant]
     Active Substance: ACENOCOUMAROL
     Indication: Product used for unknown indication
     Dosage: 20 TABLETS
     Route: 065
     Dates: start: 20230104
  4. ENALAPRIL [Concomitant]
     Active Substance: ENALAPRIL
     Indication: Product used for unknown indication
     Dosage: (2142A)
     Route: 065
     Dates: start: 20230112
  5. METFORMIN HYDROCHLORIDE [Concomitant]
     Active Substance: METFORMIN HYDROCHLORIDE
     Indication: Product used for unknown indication
     Dosage: EFG, 50 TABLETS
     Route: 065
     Dates: start: 20120525
  6. FUROSEMIDA UXA [Concomitant]
     Indication: Product used for unknown indication
     Dosage: EFG, 30 TABLETS
     Route: 065
     Dates: start: 20200928
  7. NAPROXEN [Concomitant]
     Active Substance: NAPROXEN
     Indication: Arthritis
     Dosage: (2002A)
     Route: 065
     Dates: start: 20230119, end: 20230123
  8. DICLOFENAC [Concomitant]
     Active Substance: DICLOFENAC
     Indication: Arthritis
     Dosage: (745A)
     Route: 065
     Dates: start: 20221231, end: 20230106
  9. INDOMETHACIN [Concomitant]
     Active Substance: INDOMETHACIN
     Indication: Arthritis
     Dosage: (167A)
     Route: 065
     Dates: start: 20220321, end: 20220325

REACTIONS (2)
  - Cardiac failure [Recovering/Resolving]
  - Acute kidney injury [Recovering/Resolving]

NARRATIVE: CASE EVENT DATE: 20230214
